FAERS Safety Report 6912668-6 (Version None)
Quarter: 2010Q3

REPORT INFORMATION
  Report Type: 
  Country: None (occurrence: None)
  Receive Date: 20100806
  Receipt Date: 20080908
  Transmission Date: 20110219
  Serious: No
  Sender: FDA-Public Use
  Company Number: US-PFIZER INC-2008074744

PATIENT
  Sex: Female
  Weight: 50 kg

DRUGS (3)
  1. DETROL LA [Suspect]
     Indication: URINARY TRACT DISORDER
     Route: 048
     Dates: start: 20080701, end: 20080801
  2. BACLOFEN [Concomitant]
     Indication: MULTIPLE SCLEROSIS
  3. NIFIDINE [Concomitant]
     Indication: HYPERTENSION

REACTIONS (1)
  - DRUG INEFFECTIVE [None]
